FAERS Safety Report 5936648-2 (Version None)
Quarter: 2008Q4

REPORT INFORMATION
  Report Type: 
  Country: None (occurrence: None)
  Receive Date: 20081021
  Receipt Date: 20071130
  Transmission Date: 20090506
  Serious: Yes (Other)
  Sender: FDA-Public Use
  Company Number: HQWYE132615JUL04

PATIENT
  Age: 48 Year
  Sex: Female

DRUGS (2)
  1. PREMARIN [Suspect]
     Indication: OESTROGEN REPLACEMENT THERAPY
     Dosage: ORAL
     Route: 048
     Dates: start: 20000601, end: 20030501
  2. ESTROTEST (BENZYL ALCOHOL/ESTRADIOL UNDECYLATE/TESTOSTERONE PHENYLPROP [Suspect]

REACTIONS (1)
  - BREAST CANCER [None]
